FAERS Safety Report 18903866 (Version 1)
Quarter: 2021Q1

REPORT INFORMATION
  Report Type: Spontaneous
  Country: US (occurrence: US)
  Receive Date: 20210217
  Receipt Date: 20210217
  Transmission Date: 20210420
  Serious: Yes (Life-Threatening, Hospitalization)
  Sender: FDA-Public Use
  Company Number: None

PATIENT
  Age: 73 Year
  Sex: Male
  Weight: 100 kg

DRUGS (6)
  1. CALCIUM ACETATE. [Concomitant]
     Active Substance: CALCIUM ACETATE
  2. ELIQUIS [Suspect]
     Active Substance: APIXABAN
     Route: 048
  3. TEMAZEPAM 7.5 MG BEDTIME PRN [Concomitant]
  4. MIDODRINE 2.5 MG BID [Concomitant]
  5. ATORVASTATIN 40 MG DAILY [Concomitant]
  6. AMIODARONE 200 MG BID [Concomitant]

REACTIONS (6)
  - Gastrointestinal haemorrhage [None]
  - Haemoglobin decreased [None]
  - Rectal haemorrhage [None]
  - Haematocrit decreased [None]
  - Hypotension [None]
  - Tachycardia [None]

NARRATIVE: CASE EVENT DATE: 20210201
